FAERS Safety Report 6025192-2 (Version None)
Quarter: 2008Q4

REPORT INFORMATION
  Report Type: 
  Country: None (occurrence: None)
  Receive Date: 20081231
  Receipt Date: 20081201
  Transmission Date: 20090506
  Serious: Yes (Life-Threatening, Hospitalization, Other)
  Sender: FDA-Public Use
  Company Number: US-BRISTOL-MYERS SQUIBB COMPANY-14393581

PATIENT
  Age: 65 Year
  Sex: Male
  Weight: 64 kg

DRUGS (6)
  1. CETUXIMAB [Suspect]
     Indication: NON-SMALL CELL LUNG CANCER METASTATIC
     Dosage: INITIAL INFUSION ON 12JAN07. RESUMED ON 09MAR2007
     Route: 042
     Dates: start: 20070216, end: 20070216
  2. DOCETAXEL [Suspect]
     Indication: NON-SMALL CELL LUNG CANCER METASTATIC
     Dosage: INITIATED ON 12JAN2007. RESUMED ON 09MAR2007
     Route: 042
     Dates: start: 20070202, end: 20070202
  3. ATROVENT [Concomitant]
     Indication: CHRONIC OBSTRUCTIVE PULMONARY DISEASE
     Route: 065
  4. IBUPROFEN TABLETS [Concomitant]
  5. VITAMIN B-12 [Concomitant]
     Route: 065
  6. FOLIC ACID [Concomitant]
     Route: 065

REACTIONS (4)
  - ANAEMIA [None]
  - DYSPNOEA [None]
  - HERPES ZOSTER [None]
  - PULMONARY EMBOLISM [None]
